FAERS Safety Report 8013725-6 (Version None)
Quarter: 2011Q4

REPORT INFORMATION
  Report Type: 
  Country: None (occurrence: None)
  Receive Date: 20111229
  Receipt Date: 20111219
  Transmission Date: 20120403
  Serious: Yes (Other)
  Sender: FDA-Public Use
  Company Number: US-ELI_LILLY_AND_COMPANY-US201109002300

PATIENT
  Sex: Female
  Weight: 97.72 kg

DRUGS (22)
  1. SUPER B COMPLEX [Concomitant]
  2. IRON [Concomitant]
  3. VITAMIN A [Concomitant]
  4. MAGNESIUM [Concomitant]
  5. FORTEO [Suspect]
     Indication: OSTEOPOROSIS
     Dosage: 20 UG, QD
     Route: 058
     Dates: start: 20060101
  6. FORTEO [Suspect]
     Dosage: 20 UG, QD
     Route: 058
     Dates: start: 20110831
  7. BONIVA [Concomitant]
  8. VITAMIN TAB [Concomitant]
  9. LISINOPRIL [Concomitant]
  10. VITAMIN E                            /001105/ [Concomitant]
  11. CALCIUM ACETATE [Concomitant]
  12. SOTALOL HCL [Concomitant]
  13. CYMBALTA [Concomitant]
  14. AMITIZA [Concomitant]
  15. CENTRUM                            /00554501/ [Concomitant]
  16. SYNTHROID [Concomitant]
  17. VITAMIN D [Concomitant]
  18. NAPROXEN (ALEVE) [Concomitant]
  19. COUMADIN [Concomitant]
  20. PRILOSEC [Concomitant]
  21. PREDNISONE TAB [Concomitant]
  22. LASIX [Concomitant]

REACTIONS (6)
  - PELVIC FRACTURE [None]
  - ARTHRALGIA [None]
  - PULMONARY HYPERTENSION [None]
  - FALL [None]
  - UPPER LIMB FRACTURE [None]
  - SPINAL FRACTURE [None]
